FAERS Safety Report 20316034 (Version 1)
Quarter: 2022Q1

REPORT INFORMATION
  Report Type: Spontaneous
  Country: ES (occurrence: ES)
  Receive Date: 20220110
  Receipt Date: 20220110
  Transmission Date: 20220423
  Serious: Yes (Other)
  Sender: FDA-Public Use
  Company Number: ES-AEMPS-1061837

PATIENT
  Age: 74 Year
  Sex: Female
  Weight: 70 kg

DRUGS (1)
  1. OXALIPLATIN [Suspect]
     Active Substance: OXALIPLATIN
     Indication: Pancreatic carcinoma
     Dosage: 85 MG / M2 EVERY 15 DAYS, UNK
     Route: 041
     Dates: start: 20211115, end: 20211130

REACTIONS (4)
  - Extrapyramidal disorder [Recovering/Resolving]
  - Dysarthria [Not Recovered/Not Resolved]
  - Eyelid ptosis [Recovering/Resolving]
  - Paraesthesia [Recovering/Resolving]

NARRATIVE: CASE EVENT DATE: 20211101
